FAERS Safety Report 13956862 (Version 1)
Quarter: 2017Q3

REPORT INFORMATION
  Report Type: Spontaneous
  Country: US (occurrence: US)
  Receive Date: 20170912
  Receipt Date: 20170912
  Transmission Date: 20171128
  Serious: No
  Sender: FDA-Public Use
  Company Number: US-TEVA-778499USA

PATIENT
  Sex: Male

DRUGS (1)
  1. ENOXAPARIN [Suspect]
     Active Substance: ENOXAPARIN
     Dosage: 40 MG/0.4 ML
     Dates: start: 20160710

REACTIONS (3)
  - Injection site haemorrhage [Unknown]
  - Product physical issue [Unknown]
  - Injection site pain [Unknown]
